FAERS Safety Report 15863171 (Version 1)
Quarter: 2019Q1

REPORT INFORMATION
  Report Type: Spontaneous
  Country: SK (occurrence: SK)
  Receive Date: 20190124
  Receipt Date: 20190124
  Transmission Date: 20190417
  Serious: Yes (Other)
  Sender: FDA-Public Use
  Company Number: SK-MYLANLABS-2019M1006277

PATIENT
  Age: 71 Year
  Sex: Female

DRUGS (1)
  1. BISOPROLOL [Suspect]
     Active Substance: BISOPROLOL
     Indication: PULMONARY ARTERIAL HYPERTENSION
     Dosage: UNK (DOSE REDUCED)

REACTIONS (2)
  - Atrioventricular block complete [Unknown]
  - Trifascicular block [Recovered/Resolved]
